FAERS Safety Report 9854246 (Version 2)
Quarter: 2014Q1

REPORT INFORMATION
  Report Type: Spontaneous
  Country: US (occurrence: US)
  Receive Date: 20140130
  Receipt Date: 20140228
  Transmission Date: 20141002
  Serious: Yes (Death, Other)
  Sender: FDA-Public Use
  Company Number: US-009507513-1401USA012554

PATIENT
  Sex: Female

DRUGS (3)
  1. TEMODAR [Suspect]
     Dosage: 100 MG NOW/FREQUENCY UNSPECIFIED
     Route: 048
     Dates: start: 20131213
  2. TEMODAR [Suspect]
     Dosage: UNK
     Route: 048
     Dates: start: 20130702
  3. TEMODAR [Suspect]
     Dosage: UNK
     Route: 048
     Dates: start: 20130912

REACTIONS (1)
  - Glioblastoma [Fatal]
